FAERS Safety Report 12780844 (Version 1)
Quarter: 2016Q3

REPORT INFORMATION
  Report Type: Spontaneous
  Country: CA (occurrence: CA)
  Receive Date: 20160926
  Receipt Date: 20160926
  Transmission Date: 20161109
  Serious: Yes (Hospitalization)
  Sender: FDA-Public Use
  Company Number: CA-INGENUS PHARMACEUTICALS, LLC-ING201609-000046

PATIENT
  Age: 47 Year
  Sex: Female

DRUGS (1)
  1. PROBENECID AND COLCHICINE [Suspect]
     Active Substance: COLCHICINE\PROBENECID

REACTIONS (14)
  - Circulatory collapse [Unknown]
  - Gangrene [Unknown]
  - Febrile neutropenia [Unknown]
  - Diarrhoea [Unknown]
  - Septic shock [Recovered/Resolved]
  - Multiple organ dysfunction syndrome [Unknown]
  - Altered state of consciousness [Recovered/Resolved]
  - Rhabdomyolysis [Unknown]
  - Myocardial infarction [Unknown]
  - Acute kidney injury [Recovered/Resolved]
  - Hepatic failure [Recovered/Resolved]
  - Intentional overdose [Unknown]
  - Deafness [Recovered/Resolved]
  - Alopecia [Unknown]
